FAERS Safety Report 4316099-7 (Version None)
Quarter: 2004Q1

REPORT INFORMATION
  Report Type: 
  Country: None (occurrence: None)
  Receive Date: 20040305
  Receipt Date: 20040218
  Transmission Date: 20041129
  Serious: Yes (Hospitalization)
  Sender: FDA-Public Use
  Company Number: B0323669A

PATIENT
  Age: 44 Year
  Sex: Female

DRUGS (9)
  1. ANECTINE [Suspect]
     Indication: GENERAL ANAESTHESIA
     Dosage: 100 MG /
  2. NIZATIDINE [Concomitant]
  3. METOCLOPRAMIDE [Concomitant]
  4. THIOPENTONE SODIUM [Concomitant]
  5. FENTANYL [Concomitant]
  6. NITROUS OXIDE [Concomitant]
  7. OXYGEN [Concomitant]
  8. ISOFLURANE [Concomitant]
  9. ATRACURIUM BESYLATE [Concomitant]

REACTIONS (7)
  - ANAESTHETIC COMPLICATION NEUROLOGICAL [None]
  - BLOOD CHOLINESTERASE DECREASED [None]
  - HYPERCAPNIA [None]
  - MIOSIS [None]
  - NEUROLOGICAL EXAMINATION ABNORMAL [None]
  - POST PROCEDURAL COMPLICATION [None]
  - RESPIRATORY DEPRESSION [None]
